FAERS Safety Report 18171768 (Version 1)
Quarter: 2020Q3

REPORT INFORMATION
  Report Type: Spontaneous
  Country: US (occurrence: US)
  Receive Date: 20200819
  Receipt Date: 20200819
  Transmission Date: 20201103
  Serious: No
  Sender: FDA-Public Use
  Company Number: US-AEGERION PHARMACEUTICAL, INC-AEGR004856

PATIENT
  Sex: Female
  Weight: 53.97 kg

DRUGS (1)
  1. JUXTAPID [Suspect]
     Active Substance: LOMITAPIDE MESYLATE
     Indication: TYPE IIA HYPERLIPIDAEMIA
     Dosage: 40 MG, QD AT BEDTIME
     Route: 048
     Dates: start: 20181031

REACTIONS (4)
  - Diet noncompliance [Unknown]
  - Diarrhoea [Recovered/Resolved]
  - Infection [Unknown]
  - Weight decreased [Unknown]
